FAERS Safety Report 6750176-6 (Version None)
Quarter: 2010Q2

REPORT INFORMATION
  Report Type: 
  Country: None (occurrence: None)
  Receive Date: 20100601
  Receipt Date: 20100520
  Transmission Date: 20101027
  Serious: Yes (Life-Threatening)
  Sender: FDA-Public Use
  Company Number: JP-PFIZER INC-2010064534

PATIENT
  Age: 47 Year
  Sex: Male
  Weight: 71 kg

DRUGS (9)
  1. SUNITINIB MALATE [Suspect]
     Indication: RENAL CELL CARCINOMA
     Dosage: 50 MG, 1X/DAY
     Route: 048
     Dates: start: 20091111, end: 20091123
  2. MAG-LAX [Concomitant]
     Dosage: UNK
     Route: 048
     Dates: start: 20091031, end: 20091128
  3. ADALAT CC [Concomitant]
     Dosage: UNK
     Route: 048
     Dates: start: 20091031, end: 20091128
  4. CANDESARTAN CILEXETIL [Concomitant]
     Dosage: UNK
     Route: 048
     Dates: start: 20091031, end: 20091128
  5. LOXONIN [Concomitant]
     Dosage: UNK
     Route: 048
     Dates: start: 20091031, end: 20091128
  6. PURSENNID [Concomitant]
     Dosage: UNK
     Route: 048
     Dates: start: 20091031, end: 20091128
  7. RHYTHMY [Concomitant]
     Dosage: UNK
     Route: 048
     Dates: start: 20091031, end: 20091128
  8. FENTANYL [Concomitant]
     Indication: RENAL CELL CARCINOMA
     Dosage: 6.3 MG, ONCE PER 3 DAYS
     Route: 062
     Dates: start: 20091031, end: 20091128
  9. OXYCODONE HCL [Concomitant]
     Indication: RENAL CELL CARCINOMA
     Dosage: 1 SACHET
     Route: 048
     Dates: start: 20091031, end: 20091128

REACTIONS (2)
  - CARDIAC FAILURE ACUTE [None]
  - PLEURAL EFFUSION [None]
